FAERS Safety Report 6818035-8 (Version None)
Quarter: 2010Q3

REPORT INFORMATION
  Report Type: 
  Country: None (occurrence: None)
  Receive Date: 20100706
  Receipt Date: 20100612
  Transmission Date: 20110219
  Serious: Yes (Hospitalization)
  Sender: FDA-Public Use
  Company Number: A0724939A

PATIENT
  Age: 40 Year
  Sex: Male
  Weight: 90.9 kg

DRUGS (22)
  1. AVANDIA [Suspect]
     Dosage: 8MG PER DAY
     Route: 048
     Dates: start: 20020606, end: 20070726
  2. DIOVAN [Concomitant]
  3. ZOCOR [Concomitant]
     Dates: start: 20040302, end: 20060927
  4. COREG [Concomitant]
     Dates: start: 20060527, end: 20071203
  5. LANTUS [Concomitant]
     Dates: start: 20060428
  6. GLUCOTROL [Concomitant]
     Dates: start: 20040227
  7. GLUCOTROL XL [Concomitant]
  8. ACTOS [Concomitant]
     Dates: start: 20011024, end: 20071108
  9. METFORMIN HCL [Concomitant]
     Dates: start: 20040505, end: 20060407
  10. ENTERA [Concomitant]
  11. LISINOPRIL [Concomitant]
  12. HUMALOG [Concomitant]
  13. MULTI-VITAMIN [Concomitant]
  14. K-DUR [Concomitant]
     Dosage: 20MEQ PER DAY
  15. ASPIRIN [Concomitant]
  16. TRICOR [Concomitant]
     Dosage: 160MG PER DAY
  17. LORTAB [Concomitant]
  18. SEREVENT [Concomitant]
     Dosage: 1PUFF TWICE PER DAY
  19. COLCHICINE [Concomitant]
  20. GUAIFENESIN [Concomitant]
  21. DICLOFENAC SODIUM [Concomitant]
  22. INDOMETHACIN [Concomitant]

REACTIONS (4)
  - CORONARY ARTERY DISEASE [None]
  - HYPERLIPIDAEMIA [None]
  - ISCHAEMIC CARDIOMYOPATHY [None]
  - MYOCARDIAL INFARCTION [None]
